FAERS Safety Report 7363315-3 (Version None)
Quarter: 2011Q1

REPORT INFORMATION
  Report Type: 
  Country: None (occurrence: None)
  Receive Date: 20110321
  Receipt Date: 20110308
  Transmission Date: 20110831
  Serious: Yes (Hospitalization, Other)
  Sender: FDA-Public Use
  Company Number: US-JNJFOC-20101204964

PATIENT
  Sex: Male
  Weight: 52.5 kg

DRUGS (5)
  1. INFLIXIMAB, RECOMBINANT [Suspect]
     Indication: CROHN'S DISEASE
     Route: 042
  2. CIPRO [Concomitant]
  3. INFLIXIMAB, RECOMBINANT [Suspect]
     Dosage: TOTAL 5 DOSES
     Route: 042
  4. METRONIDAZOLE [Concomitant]
  5. MERCAPTOPURINE [Concomitant]

REACTIONS (2)
  - CROHN'S DISEASE [None]
  - PERIRECTAL ABSCESS [None]
